FAERS Safety Report 8287083-6 (Version None)
Quarter: 2012Q2

REPORT INFORMATION
  Report Type: 
  Country: None (occurrence: None)
  Receive Date: 20120416
  Receipt Date: 20120402
  Transmission Date: 20120825
  Serious: Yes (Hospitalization, Other)
  Sender: FDA-Public Use
  Company Number: JP-ROCHE-1012590

PATIENT
  Sex: Female
  Weight: 46.8 kg

DRUGS (13)
  1. FOLIC ACID [Concomitant]
     Dates: start: 20081112
  2. PREDNISOLONE [Concomitant]
     Dates: start: 20110721
  3. WARFARIN SODIUM [Concomitant]
     Dates: start: 20100519
  4. ACTEMRA [Suspect]
     Indication: RHEUMATOID ARTHRITIS
     Dates: start: 20091216
  5. PREDNISOLONE [Concomitant]
     Dates: start: 20100323
  6. ALENDRONATE SODIUM [Concomitant]
     Dates: start: 20080604
  7. EZETIMIBE [Concomitant]
     Dates: start: 20110427
  8. ALENDRONATE SODIUM [Concomitant]
     Dates: start: 20080604
  9. ACTEMRA [Suspect]
     Dates: start: 20110608
  10. LOXOPROFEN SODIUM [Concomitant]
     Dates: start: 20100608
  11. BLINDED OCRELIZUMAB [Suspect]
     Indication: RHEUMATOID ARTHRITIS
     Dosage: LAST DOSE PRIOR TO SAE ON 27 JUL 2009.
     Route: 042
     Dates: start: 20090126
  12. METHOTREXATE [Suspect]
     Indication: PRODUCT USED FOR UNKNOWN INDICATION
     Dates: start: 20080902
  13. LANSOPRAZOLE [Concomitant]
     Dates: start: 20100302

REACTIONS (3)
  - ASCITES [None]
  - INGUINAL HERNIA [None]
  - BENIGN OVARIAN TUMOUR [None]
